FAERS Safety Report 19804166 (Version 5)
Quarter: 2023Q2

REPORT INFORMATION
  Report Type: Spontaneous
  Country: US (occurrence: None)
  Receive Date: 20210908
  Receipt Date: 20230515
  Transmission Date: 20230721
  Serious: Yes (Other)
  Sender: FDA-Public Use
  Company Number: US-FARMAPROD-202106-1005

PATIENT
  Age: 75 Year
  Sex: Female

DRUGS (5)
  1. OXERVATE [Suspect]
     Active Substance: CENEGERMIN-BKBJ
     Indication: Neurotrophic keratopathy
     Route: 047
     Dates: start: 20210614, end: 20210811
  2. OXERVATE [Suspect]
     Active Substance: CENEGERMIN-BKBJ
     Route: 047
     Dates: start: 20230313, end: 20230320
  3. SYSTANE (HYPROMELLOSE 2910 (4000 MPA.S)) [Concomitant]
     Active Substance: HYPROMELLOSE 2910 (4000 MPA.S)
     Dosage: 3 %-94 %
  4. TGEL [Concomitant]
     Dosage: LUBRICATING GEL.
  5. POLYTRIM [Concomitant]
     Active Substance: POLYMYXIN B SULFATE\TRIMETHOPRIM SULFATE
     Dates: start: 20230213

REACTIONS (7)
  - Uveitis [Recovered/Resolved]
  - Eye pain [Unknown]
  - Ocular hyperaemia [Unknown]
  - Product dose omission issue [Unknown]
  - Wrong technique in product usage process [Unknown]
  - Product storage error [Unknown]
  - Treatment delayed [Unknown]

NARRATIVE: CASE EVENT DATE: 20230313
